FAERS Safety Report 9029845 (Version 7)
Quarter: 2014Q1

REPORT INFORMATION
  Report Type: Spontaneous
  Country: US (occurrence: US)
  Receive Date: 20130124
  Receipt Date: 20140319
  Transmission Date: 20141002
  Serious: Yes (Hospitalization, Other)
  Sender: FDA-Public Use
  Company Number: US-009507513-1301USA010638

PATIENT
  Sex: Female
  Weight: 78.5 kg

DRUGS (2)
  1. FOSAMAX [Suspect]
     Indication: OSTEOPOROSIS
     Dosage: 70 MG, QW
     Route: 048
     Dates: start: 20030828
  2. ALENDRONATE SODIUM [Suspect]
     Dosage: 70 MG, QW
     Route: 048

REACTIONS (35)
  - Intramedullary rod insertion [Unknown]
  - Biopsy [Unknown]
  - Open reduction of fracture [Unknown]
  - Open reduction of fracture [Unknown]
  - Femur fracture [Unknown]
  - Bone lesion [Unknown]
  - Blood cholesterol increased [Unknown]
  - Type 2 diabetes mellitus [Unknown]
  - Balance disorder [Unknown]
  - Knee deformity [Unknown]
  - Exostosis [Unknown]
  - Spinal osteoarthritis [Unknown]
  - Hypertension [Unknown]
  - Osteoarthritis [Unknown]
  - Asthma [Unknown]
  - Radius fracture [Unknown]
  - Radius fracture [Unknown]
  - Lower limb fracture [Unknown]
  - Osteoarthritis [Unknown]
  - Ulna fracture [Unknown]
  - Cough [Not Recovered/Not Resolved]
  - Nasal septal operation [Unknown]
  - Dysuria [Unknown]
  - Ligament sprain [Unknown]
  - Diabetes mellitus inadequate control [Unknown]
  - Osteoporosis [Unknown]
  - Fall [Unknown]
  - Cholelithiasis [Unknown]
  - Colitis microscopic [Unknown]
  - Cataract [Unknown]
  - Insomnia [Unknown]
  - Haemorrhoids [Unknown]
  - Gastrooesophageal reflux disease [Unknown]
  - Back pain [Not Recovered/Not Resolved]
  - Nausea [Unknown]
